FAERS Safety Report 4578307-7 (Version None)
Quarter: 2005Q1

REPORT INFORMATION
  Report Type: 
  Country: None (occurrence: None)
  Receive Date: 20050204
  Receipt Date: 20050204
  Transmission Date: 20050727
  Serious: No
  Sender: FDA-Public Use
  Company Number: None

PATIENT
  Age: 65 Year
  Sex: Female
  Weight: 50.8029 kg

DRUGS (1)
  1. DOXYCYCLINE [Suspect]
     Indication: PERIODONTITIS
     Dosage: 20 MG BID

REACTIONS (1)
  - VAGINAL MYCOSIS [None]
